FAERS Safety Report 23092131 (Version 2)
Quarter: 2023Q4

REPORT INFORMATION
  Report Type: Spontaneous
  Country: CZ (occurrence: CZ)
  Receive Date: 20231021
  Receipt Date: 20231108
  Transmission Date: 20240109
  Serious: Yes (Hospitalization, Disabling, Other)
  Sender: FDA-Public Use
  Company Number: CZ-NOVPHSZ-PHHY2018CZ027605

PATIENT
  Age: 62 Year
  Sex: Male

DRUGS (5)
  1. CALCIUM [Suspect]
     Active Substance: CALCIUM
     Dosage: 1000 MG, QD
  2. WARFARIN SODIUM [Suspect]
     Active Substance: WARFARIN SODIUM
     Indication: Deep vein thrombosis
     Dosage: UNK
     Dates: start: 1992
  3. PARICALCITOL [Suspect]
     Active Substance: PARICALCITOL
     Indication: Nephropathy
     Dosage: 1 UG, QD
     Route: 065
  4. SODIUM BICARBONATE [Suspect]
     Active Substance: SODIUM BICARBONATE
     Indication: Nephropathy
     Route: 065
  5. ASPIRIN [Concomitant]
     Active Substance: ASPIRIN
     Dosage: UNK

REACTIONS (5)
  - Calciphylaxis [Recovered/Resolved]
  - Skin ulcer [Recovered/Resolved]
  - Skin disorder [Recovered/Resolved]
  - Pain [Recovered/Resolved]
  - Skin necrosis [Recovered/Resolved]
